FAERS Safety Report 5370808-7 (Version None)
Quarter: 2007Q2

REPORT INFORMATION
  Report Type: 
  Country: None (occurrence: None)
  Receive Date: 20070626
  Receipt Date: 20070501
  Transmission Date: 20071010
  Serious: Yes (Hospitalization, Disabling, Other)
  Sender: FDA-Public Use
  Company Number: US-PURDUE-USA_2007_0027669

PATIENT
  Sex: Male

DRUGS (1)
  1. OXYCONTIN [Suspect]
     Indication: NECK PAIN
     Dosage: 40 MG, TID
     Dates: start: 20010104, end: 20010316

REACTIONS (21)
  - ANXIETY [None]
  - BLADDER DISORDER [None]
  - BLADDER HYPERTROPHY [None]
  - DEPRESSION [None]
  - DEPRESSION SUICIDAL [None]
  - DISABILITY [None]
  - GALLBLADDER DISORDER [None]
  - GASTRIC ULCER [None]
  - GASTRITIS [None]
  - GASTROINTESTINAL DISORDER [None]
  - HEPATIC MASS [None]
  - IRRITABLE BOWEL SYNDROME [None]
  - MOOD SWINGS [None]
  - OESOPHAGEAL DISORDER [None]
  - OESOPHAGEAL ULCER [None]
  - PAIN [None]
  - PANIC ATTACK [None]
  - PANIC DISORDER [None]
  - PEPTIC ULCER [None]
  - SUICIDAL IDEATION [None]
  - SUICIDE ATTEMPT [None]
